FAERS Safety Report 8858430 (Version 1)
Quarter: 2012Q4

REPORT INFORMATION
  Report Type: 
  Country: JP (occurrence: JP)
  Receive Date: 20121024
  Receipt Date: 20121024
  Transmission Date: 20130627
  Serious: Yes (Other)
  Sender: FDA-Public Use
  Company Number: JP-009507513-1210JPN010819

PATIENT
  Age: 70 Year
  Sex: Male

DRUGS (4)
  1. JANUVIA TABLETS 100MG [Suspect]
     Indication: DIABETES MELLITUS MANAGEMENT
     Dosage: Divided dose frequency unknown
     Route: 048
  2. BASEN [Suspect]
     Indication: DIABETES MELLITUS MANAGEMENT
     Dosage: Daily dose unknown
     Route: 048
  3. ALDACTONE A [Suspect]
     Indication: CEREBRAL INFARCTION
     Dosage: Daily dose unknown
     Route: 048
  4. SYMMETREL [Concomitant]
     Dosage: Daily dose unknown
     Route: 065

REACTIONS (4)
  - Convulsion [Recovered/Resolved]
  - Somnolence [Not Recovered/Not Resolved]
  - Renal impairment [Recovering/Resolving]
  - Blood potassium increased [Recovering/Resolving]
